FAERS Safety Report 4509529-9 (Version None)
Quarter: 2004Q4

REPORT INFORMATION
  Report Type: 
  Country: None (occurrence: None)
  Receive Date: 20041119
  Receipt Date: 20041104
  Transmission Date: 20050328
  Serious: Yes (Hospitalization)
  Sender: FDA-Public Use
  Company Number: 202116

PATIENT
  Age: 68 Year
  Sex: Female
  Weight: 94.1214 kg

DRUGS (17)
  1. AVONEX [Suspect]
     Indication: MULTIPLE SCLEROSIS
     Dosage: 30 MCG QW IM
     Route: 030
     Dates: start: 20020601, end: 20040101
  2. AVONEX [Suspect]
     Indication: MULTIPLE SCLEROSIS
     Dosage: 30 MCG QW IM
     Route: 030
     Dates: start: 20040101
  3. ASPIRIN [Concomitant]
  4. FOLIC ACID [Concomitant]
  5. PREVACID [Concomitant]
  6. METOPROLOL [Concomitant]
  7. LIPITOR [Concomitant]
  8. PLAVIX [Concomitant]
  9. LEXAPRO [Concomitant]
  10. ATIVAN [Concomitant]
  11. OXYCONTIN [Concomitant]
  12. OXYCODONE HCL [Concomitant]
  13. ICAPS [Concomitant]
  14. NEURONTIN [Concomitant]
  15. NEBULIZER [Concomitant]
  16. OXYGEN [Concomitant]
  17. TYLENOL (CAPLET) [Concomitant]

REACTIONS (19)
  - CHOLELITHIASIS [None]
  - CONDITION AGGRAVATED [None]
  - CONFUSIONAL STATE [None]
  - DIARRHOEA [None]
  - EPISTAXIS [None]
  - LIVER DISORDER [None]
  - LUNG DISORDER [None]
  - MEMORY IMPAIRMENT [None]
  - MULTIPLE SCLEROSIS [None]
  - NASAL SEPTUM DISORDER [None]
  - OBSTRUCTION [None]
  - OESOPHAGEAL DISORDER [None]
  - POST PROCEDURAL HAEMORRHAGE [None]
  - SOMNOLENCE [None]
  - SWELLING FACE [None]
  - SWOLLEN TONGUE [None]
  - TRANSIENT ISCHAEMIC ATTACK [None]
  - VOCAL CORD DISORDER [None]
  - WEIGHT DECREASED [None]
